FAERS Safety Report 11082337 (Version 3)
Quarter: 2016Q2

REPORT INFORMATION
  Report Type: Spontaneous
  Country: US (occurrence: US)
  Receive Date: 20150501
  Receipt Date: 20160523
  Transmission Date: 20160815
  Serious: No
  Sender: FDA-Public Use
  Company Number: US-PFIZER INC-2015142729

PATIENT
  Age: 68 Year
  Sex: Female

DRUGS (10)
  1. CELEBREX [Suspect]
     Active Substance: CELECOXIB
     Indication: OSTEOARTHRITIS
     Dosage: 200 MG, 2X/DAY
     Dates: start: 1998
  2. TRIAMTERENE. [Suspect]
     Active Substance: TRIAMTERENE
     Indication: JOINT SWELLING
     Dosage: 37.5 MG, UNK
     Dates: start: 2006
  3. TRAMADOL. [Concomitant]
     Active Substance: TRAMADOL
     Dosage: 50 MG, 1X/DAY
     Dates: start: 201307
  4. SKELAXIN [Concomitant]
     Active Substance: METAXALONE
     Indication: MYALGIA
     Dosage: 800 MG, AS NEEDED
     Dates: start: 2005
  5. LYRICA [Suspect]
     Active Substance: PREGABALIN
     Indication: NEURALGIA
     Dosage: 150 MG, 1X/DAY
     Dates: start: 2009
  6. TRAMADOL. [Concomitant]
     Active Substance: TRAMADOL
     Indication: PAIN
     Dosage: UNK, AS NEEDED
  7. CYMBALTA [Concomitant]
     Active Substance: DULOXETINE HYDROCHLORIDE
     Dosage: 60 MG, 2X/DAY
  8. LYRICA [Suspect]
     Active Substance: PREGABALIN
     Indication: NEUROPATHY PERIPHERAL
     Dosage: 180 MG, UNK
  9. SKELAXIN [Concomitant]
     Active Substance: METAXALONE
     Indication: BACK PAIN
  10. ESTRADIOL. [Concomitant]
     Active Substance: ESTRADIOL
     Dosage: 0.5 MG, 4X/DAY

REACTIONS (1)
  - Constipation [Not Recovered/Not Resolved]
